FAERS Safety Report 18352931 (Version 1)
Quarter: 2020Q4

REPORT INFORMATION
  Report Type: Spontaneous
  Country: US (occurrence: US)
  Receive Date: 20201006
  Receipt Date: 20201006
  Transmission Date: 20210114
  Serious: No
  Sender: FDA-Public Use
  Company Number: US-ALLERGAN-1941974US

PATIENT
  Age: 57 Year
  Sex: Male

DRUGS (3)
  1. STOMACH ENZYMES [Concomitant]
     Dosage: UNK
     Dates: start: 201905
  2. LINZESS [Suspect]
     Active Substance: LINACLOTIDE
     Indication: CONSTIPATION
     Dosage: 290 ?G
     Route: 048
     Dates: start: 20191014
  3. ZOLOFT [Suspect]
     Active Substance: SERTRALINE HYDROCHLORIDE
     Indication: HYPERTENSION
     Dosage: UNK
     Dates: start: 20191010

REACTIONS (8)
  - Heart rate increased [Unknown]
  - Incorrect dose administered [Unknown]
  - Hypertension [Unknown]
  - Blood glucose decreased [Unknown]
  - Diarrhoea [Recovered/Resolved]
  - Irregular sleep wake rhythm disorder [Unknown]
  - Tremor [Unknown]
  - Feeling abnormal [Unknown]

NARRATIVE: CASE EVENT DATE: 20191014
